FAERS Safety Report 19594710 (Version 1)
Quarter: 2021Q3

REPORT INFORMATION
  Report Type: Spontaneous
  Country: US (occurrence: US)
  Receive Date: 20210722
  Receipt Date: 20210722
  Transmission Date: 20211014
  Serious: Yes (Death, Hospitalization)
  Sender: FDA-Public Use
  Company Number: US-TEVA-2021-US-1933845

PATIENT
  Age: 19 Year
  Sex: Male

DRUGS (1)
  1. HYDROXOCOBALAMIN [Suspect]
     Active Substance: HYDROXOCOBALAMIN
     Indication: TOXICITY TO VARIOUS AGENTS
     Route: 065

REACTIONS (1)
  - Drug ineffective [Fatal]
